FAERS Safety Report 8060646-9 (Version None)
Quarter: 2012Q1

REPORT INFORMATION
  Report Type: 
  Country: None (occurrence: None)
  Receive Date: 20120120
  Receipt Date: 20120113
  Transmission Date: 20120608
  Serious: Yes (Other)
  Sender: FDA-Public Use
  Company Number: US-TEVA-273569USA

PATIENT
  Sex: Female
  Weight: 75.364 kg

DRUGS (1)
  1. PLAN B ONE-STEP [Suspect]
     Indication: POST COITAL CONTRACEPTION
     Dosage: 1.5 MILLIGRAM;
     Route: 048
     Dates: start: 20110312, end: 20110312

REACTIONS (8)
  - BACK PAIN [None]
  - ABORTION MISSED [None]
  - NAUSEA [None]
  - PREGNANCY AFTER POST COITAL CONTRACEPTION [None]
  - ABDOMINAL PAIN [None]
  - DRUG INEFFECTIVE [None]
  - DIZZINESS [None]
  - HORMONE LEVEL ABNORMAL [None]
